FAERS Safety Report 25212729 (Version 1)
Quarter: 2025Q2

REPORT INFORMATION
  Report Type: Spontaneous
  Country: FR (occurrence: FR)
  Receive Date: 20250418
  Receipt Date: 20250418
  Transmission Date: 20250717
  Serious: Yes (Other)
  Sender: TERSERA THERAPEUTICS
  Company Number: FR-ESTEVE-2025-00752

PATIENT

DRUGS (1)
  1. PRIALT [Suspect]
     Active Substance: ZICONOTIDE ACETATE
     Indication: Product used for unknown indication
     Route: 037

REACTIONS (4)
  - Neuromyopathy [Unknown]
  - Neuromuscular pain [Unknown]
  - Pain [Unknown]
  - Gait disturbance [Unknown]
